FAERS Safety Report 4870892-0 (Version None)
Quarter: 2006Q1

REPORT INFORMATION
  Report Type: 
  Country: None (occurrence: None)
  Receive Date: 20060103
  Receipt Date: 20050228
  Transmission Date: 20060701
  Serious: Yes (Hospitalization)
  Sender: FDA-Public Use
  Company Number: JP-SANOFI-SYNTHELABO-F01200500373

PATIENT
  Sex: Female
  Weight: 55 kg

DRUGS (106)
  1. CLOPIDOGREL [Suspect]
     Indication: ELECTROCARDIOGRAM ST SEGMENT ELEVATION
     Dosage: LOADING DOSE 300 MG FOLLOWED BY 75 MG DAILY
     Route: 048
     Dates: start: 20050214, end: 20050309
  2. TICLOPIDINE HCL [Suspect]
  3. PRSOCOPE [Interacting]
     Dosage: 190 ML
     Route: 022
     Dates: start: 20050214, end: 20050214
  4. ISOSORBIDE MONONITRATE [Concomitant]
     Indication: ANGINA PECTORIS
     Dosage: 80 MG
     Route: 048
     Dates: start: 20050218, end: 20050303
  5. ADALAT [Concomitant]
     Indication: HYPERTENSION
     Dosage: 10 MG
     Route: 048
     Dates: end: 20050210
  6. ADALAT [Concomitant]
     Route: 048
     Dates: start: 20050222, end: 20050223
  7. AMLODIPINE BESYLATE [Concomitant]
     Indication: HYPERTENSION
     Dosage: 5 MG
     Route: 048
     Dates: end: 20050214
  8. AMLODIPINE BESYLATE [Concomitant]
     Route: 048
     Dates: start: 20050219
  9. AMLODIPINE BESYLATE [Concomitant]
     Route: 048
     Dates: start: 20050215, end: 20050218
  10. ALDACTONE [Concomitant]
     Indication: POLYURIA
     Dosage: 25 MG
     Route: 048
     Dates: start: 20050223
  11. GLIMICRON [Concomitant]
     Indication: DIABETES MELLITUS
     Dosage: 40 MG
     Route: 048
     Dates: start: 20050216, end: 20050221
  12. GLIMICRON [Concomitant]
     Dosage: 40 MG
     Route: 048
     Dates: start: 20050222, end: 20050227
  13. KREMEZIN [Concomitant]
     Indication: AZOTAEMIA
     Route: 048
     Dates: start: 20050216, end: 20050223
  14. KREMEZIN [Concomitant]
     Route: 048
     Dates: start: 20050228, end: 20050303
  15. SIGMART [Concomitant]
     Indication: ANGINA PECTORIS
     Dosage: 20 MG
     Route: 048
     Dates: start: 20050221
  16. CEFZON [Concomitant]
     Indication: INFECTION PROPHYLAXIS
     Dosage: 900 MG
     Route: 048
     Dates: end: 20050216
  17. SERENACE [Concomitant]
     Indication: RESTLESSNESS
     Dosage: 0.75 MG
     Route: 048
     Dates: start: 20050215, end: 20050219
  18. SERENACE [Concomitant]
     Route: 048
     Dates: start: 20050215, end: 20050215
  19. NU-LOTAN [Concomitant]
     Indication: HYPERTENSION
     Dosage: 25 MG
     Route: 048
     Dates: end: 20050221
  20. NU-LOTAN [Concomitant]
     Route: 048
     Dates: start: 20050222
  21. NU-LOTAN [Concomitant]
     Dosage: 25 MG
     Route: 048
     Dates: start: 20050222, end: 20050225
  22. NU-LOTAN [Concomitant]
     Route: 048
     Dates: start: 20050224, end: 20050227
  23. ASPIRIN [Concomitant]
     Indication: THROMBOSIS
     Dosage: 100 MG
     Route: 048
     Dates: start: 20050213
  24. FERROMIA [Concomitant]
     Indication: ANAEMIA
     Dosage: 100 MG
     Route: 048
     Dates: start: 20050214, end: 20050216
  25. FERROMIA [Concomitant]
     Dosage: 100 MG
     Route: 048
     Dates: start: 20050218, end: 20050223
  26. MAGNESIUM OXIDE [Concomitant]
     Indication: CONSTIPATION
     Route: 048
     Dates: start: 20050219
  27. MAGNESIUM OXIDE [Concomitant]
     Dosage: 4.5 MG
     Route: 048
     Dates: start: 20050225, end: 20050303
  28. YODEL S [Concomitant]
     Indication: CONSTIPATION
     Route: 048
     Dates: start: 20050217
  29. LIPITOR [Concomitant]
     Indication: HYPERLIPIDAEMIA
     Dosage: 10 MG
     Route: 048
     Dates: start: 20050215, end: 20050303
  30. GLUCOSE [Concomitant]
     Indication: PROPHYLAXIS
     Route: 048
     Dates: start: 20050221
  31. LASIX [Concomitant]
     Indication: POLYURIA
     Route: 048
     Dates: start: 20050222
  32. LASIX [Concomitant]
     Route: 042
     Dates: start: 20050215, end: 20050215
  33. LASIX [Concomitant]
     Route: 042
     Dates: start: 20050216, end: 20050216
  34. LECICARBON [Concomitant]
     Indication: CONSTIPATION
     Dosage: 1 DOSE FORMS AS REQUIRED
     Route: 054
     Dates: start: 20050218
  35. HEPARIN SODIUM [Concomitant]
     Indication: THROMBOSIS PROPHYLAXIS
     Dosage: 7000 IU
     Route: 042
     Dates: start: 20050214, end: 20050214
  36. HEPARIN SODIUM [Concomitant]
     Dosage: 392.2 IU/HOUR
     Route: 041
     Dates: start: 20050213, end: 20050219
  37. HEPARIN SODIUM [Concomitant]
     Dosage: 212.2 IU/HOUR
     Route: 041
     Dates: start: 20050224, end: 20050225
  38. HEPARIN SODIUM [Concomitant]
     Dosage: 4000 IU
     Route: 010
     Dates: start: 20050224, end: 20050224
  39. HEPARIN SODIUM [Concomitant]
     Dosage: 4000 IU
     Route: 010
     Dates: start: 20050223, end: 20050223
  40. HEPARIN SODIUM [Concomitant]
     Dosage: 4000 IU
     Route: 010
     Dates: start: 20050309, end: 20050309
  41. HEPARIN SODIUM [Concomitant]
     Dosage: 4000 IU
     Route: 010
     Dates: start: 20050306, end: 20050306
  42. HEPARIN SODIUM [Concomitant]
     Dosage: 4000 IU
     Route: 010
     Dates: start: 20050305, end: 20050305
  43. HEPARIN SODIUM [Concomitant]
     Dosage: 4000 IU
     Route: 010
     Dates: start: 20050304, end: 20050304
  44. HEPARIN SODIUM [Concomitant]
     Dosage: 4000 IU
     Route: 010
     Dates: start: 20050303, end: 20050303
  45. HEPARIN SODIUM [Concomitant]
     Dosage: 4000 IU
     Route: 010
     Dates: start: 20050302, end: 20050302
  46. HEPARIN SODIUM [Concomitant]
     Dosage: 4000 IU
     Route: 010
     Dates: start: 20050228, end: 20050228
  47. HEPARIN SODIUM [Concomitant]
     Dosage: 4000 IU
     Route: 010
     Dates: start: 20050224, end: 20050224
  48. GASTER [Concomitant]
     Indication: GASTROINTESTINAL DISORDER
     Dosage: 20 MG
     Route: 042
     Dates: end: 20050216
  49. GASTER [Concomitant]
     Dosage: 20 MG
     Route: 042
     Dates: start: 20050224, end: 20050224
  50. NITROGLYCERIN [Concomitant]
     Indication: ANGINA PECTORIS
     Dosage: 1.5-3 MG/H
     Route: 041
     Dates: start: 20050213, end: 20050214
  51. NITROGLYCERIN [Concomitant]
     Dosage: 1 MG/H
     Route: 041
     Dates: start: 20050216, end: 20050216
  52. NITROGLYCERIN [Concomitant]
     Dosage: 1.5 MG/H
     Route: 041
     Dates: start: 20050218, end: 20050218
  53. NITROGLYCERIN [Concomitant]
     Dosage: 2 MG/H
     Route: 041
     Dates: start: 20050220, end: 20050220
  54. NITROGLYCERIN [Concomitant]
     Dosage: 1.5-2.0 MG/H
     Route: 041
     Dates: start: 20050219, end: 20050219
  55. NITROGLYCERIN [Concomitant]
     Dosage: 1 MG/H
     Route: 041
     Dates: start: 20050228, end: 20050306
  56. NITROGLYCERIN [Concomitant]
     Dosage: 2.5-1.0 MG/H
     Route: 041
     Dates: start: 20050228, end: 20050228
  57. NITROGLYCERIN [Concomitant]
     Dosage: 2.0-2.5 MG/H
     Route: 041
     Dates: start: 20050227, end: 20050227
  58. NITROGLYCERIN [Concomitant]
     Dosage: 2.0 MG/H
     Route: 041
     Dates: start: 20050226, end: 20050226
  59. NITROGLYCERIN [Concomitant]
     Dosage: 0.5-1.5 MG/H
     Route: 041
     Dates: start: 20050224, end: 20050224
  60. NITROGLYCERIN [Concomitant]
     Dosage: 0.5-7 MG/H
     Route: 041
     Dates: start: 20050225, end: 20050225
  61. NITROGLYCERIN [Concomitant]
     Dosage: 2.0 MG/H
     Route: 041
     Dates: start: 20050223, end: 20050223
  62. NITROGLYCERIN [Concomitant]
     Dosage: 1.0-2.0 MG/H
     Route: 042
     Dates: start: 20050222, end: 20050222
  63. NITROGLYCERIN [Concomitant]
     Dosage: 1.0-1.8 MG/H
     Route: 041
     Dates: start: 20050217, end: 20050217
  64. NITROGLYCERIN [Concomitant]
     Dosage: 0.8 MG/H
     Route: 041
     Dates: start: 20050216, end: 20050216
  65. NITROGLYCERIN [Concomitant]
     Dosage: 0.5-1.5 MG/H
     Route: 041
     Dates: start: 20050214, end: 20050214
  66. NITROGLYCERIN [Concomitant]
     Dosage: 0.5-2.0 MG/H
     Route: 041
     Dates: start: 20050215, end: 20050215
  67. EPOGIN [Concomitant]
     Indication: ANAEMIA
     Dosage: 6000 IU
     Route: 058
     Dates: start: 20050215, end: 20050215
  68. EPOGIN [Concomitant]
     Dosage: 6000 IU
     Route: 058
     Dates: start: 20050222, end: 20050222
  69. EPOGIN [Concomitant]
     Dosage: 6000 IU
     Route: 058
     Dates: start: 20050228, end: 20050228
  70. EPOGIN [Concomitant]
     Dosage: 6000 IU
     Route: 058
     Dates: start: 20050301, end: 20050301
  71. CEFAZOLIN [Concomitant]
     Indication: INFECTION PROPHYLAXIS
     Dosage: 1 GR
     Route: 042
     Dates: start: 20050216, end: 20050218
  72. BLUTAL [Concomitant]
     Indication: ANAEMIA
     Dosage: 40 MG
     Route: 042
     Dates: start: 20050216, end: 20050222
  73. BLUTAL [Concomitant]
     Dosage: 40 MG
     Route: 042
     Dates: start: 20050228
  74. TIENAM [Concomitant]
     Indication: INFECTION PROPHYLAXIS
     Dosage: 0.5 GR
     Route: 041
     Dates: start: 20050223, end: 20050301
  75. HANP [Concomitant]
     Indication: CARDIAC FAILURE
     Dosage: 150-450 MCG/H
     Route: 041
     Dates: start: 20050217, end: 20050217
  76. HANP [Concomitant]
     Dosage: 600 MCG/H
     Route: 041
     Dates: start: 20050219, end: 20050223
  77. HANP [Concomitant]
     Dosage: 450-600 MCG/H
     Route: 041
     Dates: start: 20050218, end: 20050218
  78. PAZUCROSS [Concomitant]
     Indication: INFECTION PROPHYLAXIS
     Dosage: 500 MG
     Route: 042
     Dates: start: 20050219, end: 20050221
  79. PAZUCROSS [Concomitant]
     Dosage: 500 MG
     Route: 041
     Dates: start: 20050302, end: 20050302
  80. CATABON [Concomitant]
     Indication: CARDIAC FAILURE
     Route: 041
     Dates: start: 20050218, end: 20050218
  81. DORMICUM [Concomitant]
     Indication: SEDATIVE THERAPY
     Dosage: 30 MG
     Route: 042
     Dates: start: 20050223, end: 20050223
  82. DORMICUM [Concomitant]
     Route: 042
     Dates: start: 20050304, end: 20050304
  83. DORMICUM [Concomitant]
     Dosage: 2.5 MG
     Route: 042
     Dates: start: 20050305, end: 20050305
  84. DORMICUM [Concomitant]
     Dosage: 4.0-5.0 MG/H
     Route: 041
     Dates: start: 20050223, end: 20050223
  85. DORMICUM [Concomitant]
     Dosage: 1.2 MG
     Route: 042
     Dates: start: 20050306
  86. DORMICUM [Concomitant]
     Dosage: 1.8-2.4 MG/H
     Route: 041
     Dates: start: 20050309, end: 20050309
  87. DORMICUM [Concomitant]
     Dosage: 1.8 MG/H
     Route: 041
     Dates: start: 20050308, end: 20050308
  88. DORMICUM [Concomitant]
     Dosage: 1.2-1.8
     Route: 041
     Dates: start: 20050307, end: 20050307
  89. DORMICUM [Concomitant]
     Dosage: 0.6-1.2 MG/H
     Route: 041
     Dates: start: 20050306, end: 20050306
  90. DORMICUM [Concomitant]
     Dosage: 2.0-5.0 MG/H
     Route: 041
     Dates: start: 20050303, end: 20050303
  91. DORMICUM [Concomitant]
     Dosage: 5.0 MG/H
     Route: 041
     Dates: start: 20050225, end: 20050225
  92. DORMICUM [Concomitant]
     Dosage: 4.0 MG/H
     Route: 041
     Dates: start: 20050224, end: 20050224
  93. FRAGMIN [Concomitant]
     Indication: COAGULATION TIME
     Dosage: 600 IU/HOUR
     Route: 041
     Dates: start: 20050224, end: 20050226
  94. FRAGMIN [Concomitant]
     Dosage: 600 IU/HOUR
     Route: 041
     Dates: start: 20050302, end: 20050302
  95. FRAGMIN [Concomitant]
     Dosage: 600 IU/HOUR
     Route: 041
     Dates: start: 20050228, end: 20050228
  96. NITOROL [Concomitant]
     Indication: ANGINA PECTORIS
     Dosage: 6.25 MG
     Route: 022
     Dates: start: 20050214, end: 20050214
  97. NITOROL [Concomitant]
     Dosage: 5 MG
     Route: 042
     Dates: start: 20050221, end: 20050221
  98. PRIMPERAN INJ [Concomitant]
     Indication: GASTROINTESTINAL DISORDER
     Dosage: 10 MG
     Route: 042
     Dates: start: 20050214, end: 20050214
  99. MEYLON [Concomitant]
     Indication: ACIDOSIS
     Dosage: 40 ML
     Route: 042
     Dates: start: 20050214, end: 20050214
  100. MEYLON [Concomitant]
     Dosage: 40 ML
     Route: 042
     Dates: start: 20050223, end: 20050223
  101. MEYLON [Concomitant]
     Indication: INFECTION
     Dosage: 40 ML
     Route: 042
     Dates: start: 20050223, end: 20050223
  102. MEYLON [Concomitant]
     Dosage: 40 ML
     Route: 042
     Dates: start: 20050214, end: 20050214
  103. HIRNAMIN [Concomitant]
     Indication: RESTLESSNESS
     Dosage: 25 MG
     Route: 042
     Dates: start: 20050215, end: 20050215
  104. DIPRIVAN [Concomitant]
     Indication: RESTLESSNESS
     Dosage: 3 ML/HOUR
     Route: 041
     Dates: start: 20050215, end: 20050215
  105. LENDORMIN [Concomitant]
     Indication: SLEEP DISORDER
     Dosage: 0.25 MG
     Route: 048
     Dates: start: 20050214, end: 20050214
  106. LENDORMIN [Concomitant]
     Dosage: 100 MG
     Route: 048
     Dates: start: 20050218, end: 20050222

REACTIONS (10)
  - BLOOD POTASSIUM INCREASED [None]
  - CARDIAC FAILURE [None]
  - CONDITION AGGRAVATED [None]
  - DIALYSIS [None]
  - DIASTOLIC DYSFUNCTION [None]
  - FLUID RETENTION [None]
  - PLEURAL EFFUSION [None]
  - PNEUMONIA [None]
  - RENAL FAILURE CHRONIC [None]
  - RESPIRATORY FAILURE [None]
